FAERS Safety Report 11090720 (Version 2)
Quarter: 2015Q2

REPORT INFORMATION
  Report Type: Report from Study
  Country: CA (occurrence: CA)
  Receive Date: 20150505
  Receipt Date: 20150522
  Transmission Date: 20150821
  Serious: Yes (Hospitalization, Other)
  Sender: FDA-Public Use
  Company Number: CA-ABBVIE-15K-028-1383853-00

PATIENT
  Age: 46 Year
  Sex: Female
  Weight: 49.94 kg

DRUGS (2)
  1. HUMIRA [Suspect]
     Active Substance: ADALIMUMAB
     Indication: CROHN^S DISEASE
     Route: 058
     Dates: start: 20150211, end: 201504
  2. HUMIRA [Suspect]
     Active Substance: ADALIMUMAB
     Route: 058
     Dates: start: 20150422

REACTIONS (14)
  - Small intestinal obstruction [Unknown]
  - Intestinal mucosal hypertrophy [Unknown]
  - Hypophagia [Unknown]
  - Crohn^s disease [Recovering/Resolving]
  - Blood albumin decreased [Recovering/Resolving]
  - Gastrointestinal inflammation [Unknown]
  - Eye swelling [Not Recovered/Not Resolved]
  - Joint swelling [Not Recovered/Not Resolved]
  - Malabsorption [Not Recovered/Not Resolved]
  - C-reactive protein abnormal [Unknown]
  - Colonic fistula [Unknown]
  - Drug ineffective [Not Recovered/Not Resolved]
  - Peripheral swelling [Not Recovered/Not Resolved]
  - Intestinal stenosis [Unknown]

NARRATIVE: CASE EVENT DATE: 2015
